FAERS Safety Report 10597338 (Version 3)
Quarter: 2014Q4

REPORT INFORMATION
  Report Type: Report from Study
  Country: CA (occurrence: CA)
  Receive Date: 20141121
  Receipt Date: 20141124
  Transmission Date: 20150529
  Serious: Yes (Death, Other)
  Sender: FDA-Public Use
  Company Number: CA-ROCHE-1475406

PATIENT
  Age: 73 Year
  Sex: Female

DRUGS (14)
  1. MIRTAZAPINE. [Concomitant]
     Active Substance: MIRTAZAPINE
  2. IMOVANE [Concomitant]
     Active Substance: ZOPICLONE
  3. OXYCODONE HYDROCHLORIDE AND ACETAMINOPHEN [Concomitant]
     Active Substance: ACETAMINOPHEN\OXYCODONE HYDROCHLORIDE
  4. RIVAROXABAN [Concomitant]
     Active Substance: RIVAROXABAN
  5. BENADRYL [Concomitant]
     Active Substance: DIPHENHYDRAMINE HYDROCHLORIDE
     Route: 048
     Dates: start: 20141006, end: 20141006
  6. LASIX [Concomitant]
     Active Substance: FUROSEMIDE
  7. OLMESARTAN [Concomitant]
     Active Substance: OLMESARTAN
  8. IMURAN [Concomitant]
     Active Substance: AZATHIOPRINE
  9. SOLU-MEDROL [Concomitant]
     Active Substance: METHYLPREDNISOLONE SODIUM SUCCINATE
     Indication: PREMEDICATION
     Route: 042
     Dates: start: 20141006, end: 20141006
  10. RITUXAN [Suspect]
     Active Substance: RITUXIMAB
     Indication: RHEUMATOID ARTHRITIS
     Dosage: DAY 1, 15
     Route: 042
     Dates: start: 20141006, end: 20141006
  11. TYLENOL [Concomitant]
     Active Substance: ACETAMINOPHEN
     Route: 048
     Dates: start: 20141006, end: 20141006
  12. PREDNISONE. [Concomitant]
     Active Substance: PREDNISONE
  13. PRAMIPEXOLE [Concomitant]
     Active Substance: PRAMIPEXOLE
  14. CRESTOR [Concomitant]
     Active Substance: ROSUVASTATIN CALCIUM

REACTIONS (4)
  - Haemoglobin decreased [Unknown]
  - Pain [Not Recovered/Not Resolved]
  - Death [Fatal]
  - Infection [Unknown]

NARRATIVE: CASE EVENT DATE: 20141012
